FAERS Safety Report 14239593 (Version 1)
Quarter: 2017Q4

REPORT INFORMATION
  Report Type: Spontaneous
  Country: US (occurrence: None)
  Receive Date: 20171130
  Receipt Date: 20171130
  Transmission Date: 20180321
  Serious: No
  Sender: FDA-Public Use
  Company Number: None

PATIENT
  Age: 66 Year
  Sex: Male

DRUGS (1)
  1. AZATHIOPRINE. [Suspect]
     Active Substance: AZATHIOPRINE
     Indication: LIVER TRANSPLANT
     Dates: start: 20170502, end: 20170920

REACTIONS (1)
  - Leukopenia [None]

NARRATIVE: CASE EVENT DATE: 20170920
